FAERS Safety Report 9817037 (Version 2)
Quarter: 2014Q2

REPORT INFORMATION
  Report Type: Spontaneous
  Country: US (occurrence: US)
  Receive Date: 20140114
  Receipt Date: 20140428
  Transmission Date: 20141212
  Serious: No
  Sender: FDA-Public Use
  Company Number: US-BIOGENIDEC-2014BI000230

PATIENT
  Age: 57 Year
  Sex: Female

DRUGS (11)
  1. TECFIDERA [Suspect]
     Indication: MULTIPLE SCLEROSIS
     Route: 048
     Dates: start: 201312
  2. TECFIDERA [Suspect]
     Indication: MULTIPLE SCLEROSIS
     Route: 048
  3. TECFIDERA [Suspect]
     Indication: MULTIPLE SCLEROSIS
     Route: 048
  4. CLONIDINE [Concomitant]
  5. XANAX [Concomitant]
  6. OXYCODONE [Concomitant]
  7. LISINOPRIL [Concomitant]
  8. NITROFURANTOIN [Concomitant]
  9. AMITIZA [Concomitant]
  10. NUEDEXTA [Concomitant]
  11. ZOFRAN [Concomitant]

REACTIONS (6)
  - Headache [Unknown]
  - Increased appetite [Unknown]
  - Fatigue [Not Recovered/Not Resolved]
  - Decreased appetite [Not Recovered/Not Resolved]
  - Anxiety [Not Recovered/Not Resolved]
  - Nausea [Not Recovered/Not Resolved]
